FAERS Safety Report 25629414 (Version 1)
Quarter: 2025Q3

REPORT INFORMATION
  Report Type: Spontaneous
  Country: US (occurrence: US)
  Receive Date: 20250731
  Receipt Date: 20250731
  Transmission Date: 20251020
  Serious: Yes (Other)
  Sender: MYLAN
  Company Number: US-MYLANLABS-2025M1062674

PATIENT
  Age: 6 Decade
  Sex: Female

DRUGS (48)
  1. CYCLOSPORINE [Suspect]
     Active Substance: CYCLOSPORINE
     Indication: Psoriasis
  2. CYCLOSPORINE [Suspect]
     Active Substance: CYCLOSPORINE
     Indication: Psoriatic arthropathy
     Route: 065
  3. CYCLOSPORINE [Suspect]
     Active Substance: CYCLOSPORINE
     Route: 065
  4. CYCLOSPORINE [Suspect]
     Active Substance: CYCLOSPORINE
  5. METHOTREXATE [Suspect]
     Active Substance: METHOTREXATE
     Indication: Psoriasis
  6. METHOTREXATE [Suspect]
     Active Substance: METHOTREXATE
     Indication: Psoriatic arthropathy
     Route: 065
  7. METHOTREXATE [Suspect]
     Active Substance: METHOTREXATE
     Route: 065
  8. METHOTREXATE [Suspect]
     Active Substance: METHOTREXATE
  9. RISANKIZUMAB [Suspect]
     Active Substance: RISANKIZUMAB
     Indication: Psoriasis
  10. RISANKIZUMAB [Suspect]
     Active Substance: RISANKIZUMAB
     Indication: Psoriatic arthropathy
     Route: 065
  11. RISANKIZUMAB [Suspect]
     Active Substance: RISANKIZUMAB
     Route: 065
  12. RISANKIZUMAB [Suspect]
     Active Substance: RISANKIZUMAB
  13. SECUKINUMAB [Suspect]
     Active Substance: SECUKINUMAB
     Indication: Psoriasis
  14. SECUKINUMAB [Suspect]
     Active Substance: SECUKINUMAB
     Indication: Psoriatic arthropathy
     Route: 065
  15. SECUKINUMAB [Suspect]
     Active Substance: SECUKINUMAB
     Route: 065
  16. SECUKINUMAB [Suspect]
     Active Substance: SECUKINUMAB
  17. ADALIMUMAB [Suspect]
     Active Substance: ADALIMUMAB
     Indication: Psoriasis
  18. ADALIMUMAB [Suspect]
     Active Substance: ADALIMUMAB
     Indication: Psoriatic arthropathy
     Route: 065
  19. ADALIMUMAB [Suspect]
     Active Substance: ADALIMUMAB
     Route: 065
  20. ADALIMUMAB [Suspect]
     Active Substance: ADALIMUMAB
  21. USTEKINUMAB [Suspect]
     Active Substance: USTEKINUMAB
     Indication: Psoriasis
  22. USTEKINUMAB [Suspect]
     Active Substance: USTEKINUMAB
     Indication: Psoriatic arthropathy
     Route: 065
  23. USTEKINUMAB [Suspect]
     Active Substance: USTEKINUMAB
     Route: 065
  24. USTEKINUMAB [Suspect]
     Active Substance: USTEKINUMAB
  25. TOFACITINIB [Suspect]
     Active Substance: TOFACITINIB
     Indication: Psoriasis
  26. TOFACITINIB [Suspect]
     Active Substance: TOFACITINIB
     Indication: Psoriatic arthropathy
     Route: 065
  27. TOFACITINIB [Suspect]
     Active Substance: TOFACITINIB
     Route: 065
  28. TOFACITINIB [Suspect]
     Active Substance: TOFACITINIB
  29. UPADACITINIB [Suspect]
     Active Substance: UPADACITINIB
     Indication: Psoriasis
  30. UPADACITINIB [Suspect]
     Active Substance: UPADACITINIB
     Indication: Psoriatic arthropathy
  31. UPADACITINIB [Suspect]
     Active Substance: UPADACITINIB
     Route: 065
  32. UPADACITINIB [Suspect]
     Active Substance: UPADACITINIB
     Route: 065
  33. UPADACITINIB [Suspect]
     Active Substance: UPADACITINIB
     Dosage: 6 MILLIGRAM, QD
  34. UPADACITINIB [Suspect]
     Active Substance: UPADACITINIB
     Dosage: 6 MILLIGRAM, QD
  35. UPADACITINIB [Suspect]
     Active Substance: UPADACITINIB
     Dosage: 6 MILLIGRAM, QD
     Route: 048
  36. UPADACITINIB [Suspect]
     Active Substance: UPADACITINIB
     Dosage: 6 MILLIGRAM, QD
     Route: 048
  37. GUSELKUMAB [Suspect]
     Active Substance: GUSELKUMAB
     Indication: Psoriasis
  38. GUSELKUMAB [Suspect]
     Active Substance: GUSELKUMAB
     Indication: Psoriatic arthropathy
     Route: 065
  39. GUSELKUMAB [Suspect]
     Active Substance: GUSELKUMAB
     Route: 065
  40. GUSELKUMAB [Suspect]
     Active Substance: GUSELKUMAB
  41. IXEKIZUMAB [Suspect]
     Active Substance: IXEKIZUMAB
     Indication: Psoriasis
  42. IXEKIZUMAB [Suspect]
     Active Substance: IXEKIZUMAB
     Indication: Psoriatic arthropathy
     Route: 065
  43. IXEKIZUMAB [Suspect]
     Active Substance: IXEKIZUMAB
     Route: 065
  44. IXEKIZUMAB [Suspect]
     Active Substance: IXEKIZUMAB
  45. IXEKIZUMAB [Suspect]
     Active Substance: IXEKIZUMAB
     Indication: Psoriasis
  46. IXEKIZUMAB [Suspect]
     Active Substance: IXEKIZUMAB
     Indication: Psoriatic arthropathy
     Route: 065
  47. IXEKIZUMAB [Suspect]
     Active Substance: IXEKIZUMAB
     Route: 065
  48. IXEKIZUMAB [Suspect]
     Active Substance: IXEKIZUMAB

REACTIONS (2)
  - Drug ineffective [Unknown]
  - Off label use [Unknown]
